FAERS Safety Report 21063470 (Version 1)
Quarter: 2022Q3

REPORT INFORMATION
  Report Type: Report from Study
  Country: EG (occurrence: EG)
  Receive Date: 20220711
  Receipt Date: 20220711
  Transmission Date: 20221027
  Serious: Yes (Hospitalization, Other)
  Sender: FDA-Public Use
  Company Number: EG-NOVARTISPH-NVSC2022EG154784

PATIENT
  Age: 11 Year
  Sex: Male

DRUGS (9)
  1. XOLAIR [Suspect]
     Active Substance: OMALIZUMAB
     Indication: Asthma
     Dosage: 150 MG, BIW
     Route: 065
     Dates: start: 202202, end: 20220525
  2. XOLAIR [Suspect]
     Active Substance: OMALIZUMAB
     Dosage: 150 MG, BIW
     Route: 065
     Dates: start: 20220704
  3. DICLOFENAC POTASSIUM [Suspect]
     Active Substance: DICLOFENAC POTASSIUM
     Indication: Abdominal pain
     Dosage: 50 MG, ONE SACHET
     Route: 065
     Dates: start: 202012, end: 202012
  4. SINGULAIR [Concomitant]
     Active Substance: MONTELUKAST SODIUM
     Indication: Asthma
     Dosage: UNK, QD, AT NIGHT
     Route: 065
     Dates: start: 2018
  5. RHINOCORT [Concomitant]
     Active Substance: BUDESONIDE
     Indication: Asthma
     Dosage: 1 INHALATION, BID
     Route: 065
     Dates: start: 2018
  6. FOSTER [Concomitant]
     Active Substance: BECLOMETHASONE\FORMOTEROL
     Indication: Asthma
     Dosage: 1 INHALATION, BID
     Route: 065
     Dates: start: 2018
  7. EBASTINE [Concomitant]
     Active Substance: EBASTINE
     Indication: Rhinitis allergic
     Dosage: UNK, QD, AT NIGHT (OCCASIONAL)
     Route: 065
     Dates: start: 2018
  8. FARCOLIN [Concomitant]
     Indication: Wheezing
     Dosage: UNK
     Route: 065
  9. PRIMPERAN [Concomitant]
     Active Substance: METOCLOPRAMIDE HYDROCHLORIDE
     Indication: Product used for unknown indication
     Dosage: UNK
     Route: 065

REACTIONS (3)
  - Asphyxia [Recovered/Resolved]
  - Cyanosis [Recovered/Resolved]
  - Pneumonia [Recovered/Resolved]

NARRATIVE: CASE EVENT DATE: 20201201
